FAERS Safety Report 8831336 (Version 2)
Quarter: 2012Q4

REPORT INFORMATION
  Report Type: 
  Country: US (occurrence: US)
  Receive Date: 20121008
  Receipt Date: 20121016
  Transmission Date: 20130627
  Serious: Yes (Hospitalization, Other)
  Sender: FDA-Public Use
  Company Number: US-GILEAD-2012-0061696

PATIENT
  Sex: Female

DRUGS (5)
  1. LETAIRIS [Suspect]
     Indication: PULMONARY ARTERIAL HYPERTENSION
     Dosage: 5 mg, UNK
     Route: 048
     Dates: start: 20120913
  2. LETAIRIS [Suspect]
     Indication: LEFT VENTRICULAR END-DIASTOLIC PRESSURE INCREASED
  3. LETAIRIS [Suspect]
     Indication: ARTERIAL STENOSIS
  4. LETAIRIS [Suspect]
     Indication: HYPERTENSION
  5. ADCIRCA [Concomitant]

REACTIONS (6)
  - Pulmonary oedema [Unknown]
  - Accelerated hypertension [Unknown]
  - Renal artery stenosis [Unknown]
  - Hypersensitivity [Unknown]
  - Swelling [Recovered/Resolved]
  - Dyspnoea [Recovered/Resolved]
